FAERS Safety Report 18067992 (Version 4)
Quarter: 2021Q4

REPORT INFORMATION
  Report Type: Spontaneous
  Country: JP (occurrence: JP)
  Receive Date: 20200724
  Receipt Date: 20211124
  Transmission Date: 20220304
  Serious: Yes (Hospitalization)
  Sender: FDA-Public Use
  Company Number: JP-ELI_LILLY_AND_COMPANY-JP202007009401

PATIENT
  Age: 7 Year
  Sex: Female
  Weight: 16.2 kg

DRUGS (38)
  1. ADCIRCA [Suspect]
     Active Substance: TADALAFIL
     Indication: Pulmonary arterial hypertension
     Dosage: 16 MG, DAILY
     Route: 065
     Dates: start: 20170606, end: 20190123
  2. ADCIRCA [Suspect]
     Active Substance: TADALAFIL
     Dosage: 16 MG, DAILY
     Route: 065
     Dates: start: 20190125
  3. UPTRAVI [Suspect]
     Active Substance: SELEXIPAG
     Indication: Pulmonary arterial hypertension
     Dosage: 0.064 MG, BID
     Route: 048
     Dates: start: 20180213, end: 20180308
  4. UPTRAVI [Suspect]
     Active Substance: SELEXIPAG
     Dosage: 0.128 MG, BID
     Route: 048
     Dates: start: 20180309, end: 20180419
  5. UPTRAVI [Suspect]
     Active Substance: SELEXIPAG
     Dosage: 0.192 MG, BID
     Route: 048
     Dates: start: 20180420, end: 20180517
  6. UPTRAVI [Suspect]
     Active Substance: SELEXIPAG
     Dosage: 0.256 MG, BID
     Route: 048
     Dates: start: 20180518, end: 20180614
  7. UPTRAVI [Suspect]
     Active Substance: SELEXIPAG
     Dosage: 0.32 MG, BID
     Route: 048
     Dates: start: 20180615, end: 20180828
  8. UPTRAVI [Suspect]
     Active Substance: SELEXIPAG
     Dosage: 0.384 MG, BID
     Route: 048
     Dates: start: 20180829, end: 20180927
  9. UPTRAVI [Suspect]
     Active Substance: SELEXIPAG
     Dosage: 0.448 MG, BID
     Route: 048
     Dates: start: 20180928, end: 20181026
  10. UPTRAVI [Suspect]
     Active Substance: SELEXIPAG
     Dosage: 0.512 MG, BID
     Route: 048
     Dates: start: 20181027
  11. OPSUMIT [Concomitant]
     Active Substance: MACITENTAN
     Indication: Pulmonary arterial hypertension
     Dosage: UNK, UNKNOWN
     Route: 065
     Dates: start: 20170208
  12. CARVEDILOL [Concomitant]
     Active Substance: CARVEDILOL
     Indication: Product used for unknown indication
     Dosage: 11 MG, DAILY
     Route: 065
     Dates: start: 20170817, end: 20181230
  13. CARVEDILOL [Concomitant]
     Active Substance: CARVEDILOL
     Dosage: 11 MG, DAILY
     Route: 065
     Dates: start: 20190105, end: 20190124
  14. CARVEDILOL [Concomitant]
     Active Substance: CARVEDILOL
     Dosage: 5.5 MG, DAILY
     Route: 065
     Dates: start: 20190125, end: 20190125
  15. CARVEDILOL [Concomitant]
     Active Substance: CARVEDILOL
     Dosage: 5 MG, DAILY
     Dates: start: 20190128, end: 20190129
  16. CARVEDILOL [Concomitant]
     Active Substance: CARVEDILOL
     Dosage: 11 MG, DAILY
     Route: 065
     Dates: start: 20190130
  17. SPIRONOLACTONE [Concomitant]
     Active Substance: SPIRONOLACTONE
     Indication: Product used for unknown indication
     Dosage: 30 MG, DAILY
     Route: 065
     Dates: start: 20180114, end: 20180526
  18. SPIRONOLACTONE [Concomitant]
     Active Substance: SPIRONOLACTONE
     Dosage: UNK UNK, DAILY
     Route: 065
     Dates: start: 20180529, end: 20180629
  19. SPIRONOLACTONE [Concomitant]
     Active Substance: SPIRONOLACTONE
     Dosage: 20 MG, DAILY
     Route: 065
     Dates: start: 20180630, end: 20181028
  20. SPIRONOLACTONE [Concomitant]
     Active Substance: SPIRONOLACTONE
     Dosage: 20 MG, DAILY
     Route: 065
     Dates: start: 20181031, end: 20181230
  21. SPIRONOLACTONE [Concomitant]
     Active Substance: SPIRONOLACTONE
     Dosage: 20 MG, DAILY
     Route: 065
     Dates: start: 20190104, end: 20190122
  22. SPIRONOLACTONE [Concomitant]
     Active Substance: SPIRONOLACTONE
     Dosage: 20 MG, DAILY
     Route: 065
     Dates: start: 20190130
  23. ENALAPRIL MALEATE [Concomitant]
     Active Substance: ENALAPRIL MALEATE
     Indication: Product used for unknown indication
     Dosage: 3.2 MG, DAILY
     Route: 065
     Dates: start: 20180213, end: 20180526
  24. ENALAPRIL MALEATE [Concomitant]
     Active Substance: ENALAPRIL MALEATE
     Dosage: 3.2 MG, DAILY
     Route: 065
     Dates: start: 20180528, end: 20180701
  25. ENALAPRIL MALEATE [Concomitant]
     Active Substance: ENALAPRIL MALEATE
     Dosage: UNK UNK, UNKNOWN
     Route: 065
     Dates: start: 20180710, end: 20181028
  26. ENALAPRIL MALEATE [Concomitant]
     Active Substance: ENALAPRIL MALEATE
     Dosage: 3.2 MG, DAILY
     Route: 065
     Dates: start: 20181031, end: 20181229
  27. ENALAPRIL MALEATE [Concomitant]
     Active Substance: ENALAPRIL MALEATE
     Dosage: 3.2 MG, DAILY
     Route: 065
     Dates: start: 20190104, end: 20190122
  28. ENALAPRIL MALEATE [Concomitant]
     Active Substance: ENALAPRIL MALEATE
     Dosage: 1.6 MG, DAILY
     Route: 065
     Dates: start: 20190131
  29. SAMSCA [Concomitant]
     Active Substance: TOLVAPTAN
     Indication: Product used for unknown indication
     Dosage: 4.8 MG, DAILY
     Route: 065
     Dates: start: 20180114, end: 20181229
  30. SAMSCA [Concomitant]
     Active Substance: TOLVAPTAN
     Dosage: 4.8 MG, DAILY
     Route: 065
     Dates: start: 20190104, end: 20190121
  31. SAMSCA [Concomitant]
     Active Substance: TOLVAPTAN
     Dosage: 4.8 MG, DAILY
     Route: 065
     Dates: start: 20190130
  32. DIGOXIN [Concomitant]
     Active Substance: DIGOXIN
     Indication: Product used for unknown indication
     Dosage: 0.11 MG, DAILY
     Dates: start: 20170606, end: 20181230
  33. DIGOXIN [Concomitant]
     Active Substance: DIGOXIN
     Dosage: 0.11 MG, DAILY
     Dates: start: 20190104, end: 20190123
  34. DIGOXIN [Concomitant]
     Active Substance: DIGOXIN
     Dosage: 0.11 MG, DAILY
     Dates: start: 20190127
  35. WARFARIN POTASSIUM [Concomitant]
     Active Substance: WARFARIN POTASSIUM
     Indication: Product used for unknown indication
     Dosage: 1.2 MG, DAILY
     Dates: start: 20180118, end: 20181025
  36. WARFARIN POTASSIUM [Concomitant]
     Active Substance: WARFARIN POTASSIUM
     Dosage: UNK UNK, UNKNOWN
     Route: 065
     Dates: start: 20181026, end: 20181227
  37. WARFARIN POTASSIUM [Concomitant]
     Active Substance: WARFARIN POTASSIUM
     Dosage: 1.4 MG, DAILY
     Route: 065
     Dates: start: 20190104, end: 20190123
  38. WARFARIN POTASSIUM [Concomitant]
     Active Substance: WARFARIN POTASSIUM
     Dosage: UNK UNK, UNKNOWN
     Route: 065
     Dates: start: 20190129

REACTIONS (17)
  - Dehydration [Recovered/Resolved]
  - Dehydration [Recovered/Resolved]
  - Dehydration [Recovering/Resolving]
  - Pneumonia viral [Recovering/Resolving]
  - Prerenal failure [Recovered/Resolved]
  - Gastroenteritis [Recovering/Resolving]
  - Diarrhoea [Recovering/Resolving]
  - Viral upper respiratory tract infection [Recovering/Resolving]
  - Vomiting [Recovering/Resolving]
  - Hypotension [Recovered/Resolved]
  - Hypotension [Recovered/Resolved]
  - Gastroenteritis [Recovering/Resolving]
  - Viral infection [Recovered/Resolved]
  - Pyrexia [Recovered/Resolved]
  - Off label use [Not Recovered/Not Resolved]
  - Hypotension [Recovered/Resolved]
  - Hypotension [Not Recovered/Not Resolved]

NARRATIVE: CASE EVENT DATE: 20170606
